FAERS Safety Report 18865715 (Version 1)
Quarter: 2021Q1

REPORT INFORMATION
  Report Type: Spontaneous
  Country: US (occurrence: US)
  Receive Date: 20210209
  Receipt Date: 20210209
  Transmission Date: 20210420
  Serious: Yes (Life-Threatening, Hospitalization)
  Sender: FDA-Public Use
  Company Number: None

PATIENT
  Age: 34 Year
  Sex: Male
  Weight: 108 kg

DRUGS (1)
  1. BENZEDREX [Suspect]
     Active Substance: PROPYLHEXEDRINE
     Indication: PRODUCT USED FOR UNKNOWN INDICATION
     Dosage: ?          QUANTITY:2 COTTON;?
     Route: 048
     Dates: start: 20190801, end: 20210208

REACTIONS (2)
  - Seizure [None]
  - Drug dependence [None]

NARRATIVE: CASE EVENT DATE: 20210208
